FAERS Safety Report 21614984 (Version 1)
Quarter: 2022Q4

REPORT INFORMATION
  Report Type: Spontaneous
  Country: FR (occurrence: FR)
  Receive Date: 20221118
  Receipt Date: 20221118
  Transmission Date: 20230112
  Serious: Yes (Life-Threatening, Hospitalization)
  Sender: FDA-Public Use
  Company Number: None

PATIENT
  Age: 65 Year
  Sex: Male
  Weight: 76 kg

DRUGS (4)
  1. DOCETAXEL [Suspect]
     Active Substance: DOCETAXEL
     Indication: Bronchial carcinoma
     Dosage: UNIT DOSE : 145 MG, FREQUENCY TIME : 1 TOTAL, DURATION : 1 DAYS
     Route: 065
     Dates: start: 20221005, end: 20221005
  2. METHOTREXATE [Suspect]
     Active Substance: METHOTREXATE
     Indication: Rheumatoid arthritis
     Dosage: UNIT DOSE : 15 MG, FREQUENCY TIME : 1 WEEKS, DURATION : 277 DAYS
     Route: 065
     Dates: start: 2022, end: 20221005
  3. PREDNISONE [Suspect]
     Active Substance: PREDNISONE
     Indication: Rheumatoid arthritis
     Dosage: UNIT DOSE : 5 MG, FREQUENCY TIME : 1 DAYS, DURATION : 275 DAYS
     Route: 065
     Dates: start: 2022, end: 20221003
  4. PREDNISONE [Suspect]
     Active Substance: PREDNISONE
     Dosage: UNIT DOSE : 15 MG, FREQUENCY TIME : 1 DAYS, DURATION : 8 DAYS
     Route: 065
     Dates: start: 20221004, end: 20221012

REACTIONS (2)
  - Septic shock [Recovered/Resolved]
  - Aplasia [Recovered/Resolved]

NARRATIVE: CASE EVENT DATE: 20221012
